FAERS Safety Report 10395762 (Version 2)
Quarter: 2014Q3

REPORT INFORMATION
  Report Type: Spontaneous
  Country: US (occurrence: US)
  Receive Date: 20140820
  Receipt Date: 20140903
  Transmission Date: 20150326
  Serious: Yes (Other)
  Sender: FDA-Public Use
  Company Number: US-BAYER-2014-123566

PATIENT
  Age: 17 Year
  Sex: Female

DRUGS (14)
  1. MIRENA [Suspect]
     Active Substance: LEVONORGESTREL
     Indication: CONTRACEPTION
     Dosage: 20 MCG/24HR, CONT
     Route: 015
     Dates: start: 20131223, end: 20140428
  2. CITALOPRAM [Concomitant]
     Active Substance: CITALOPRAM HYDROBROMIDE
     Dosage: 40 MG, QD
     Route: 048
     Dates: start: 20131223, end: 20140402
  3. BUPROPION [Concomitant]
     Active Substance: BUPROPION
     Dosage: 150 MG, QD
     Route: 048
     Dates: start: 20140319, end: 20140402
  4. LACTIC ACID. [Concomitant]
     Active Substance: LACTIC ACID
     Dosage: UNK
     Dates: start: 20130802
  5. KENALOG [Concomitant]
     Active Substance: TRIAMCINOLONE ACETONIDE
     Dosage: UNK
     Dates: start: 20140320
  6. ENOXAPARIN [Concomitant]
     Active Substance: ENOXAPARIN
     Dosage: 150 MG, QD
     Dates: start: 20140224, end: 20140307
  7. VICODIN [Concomitant]
     Active Substance: ACETAMINOPHEN\HYDROCODONE BITARTRATE
     Dosage: UNK
     Dates: start: 20140224
  8. BENZONATATE. [Concomitant]
     Active Substance: BENZONATATE
     Dosage: 100 MG, TID
     Route: 048
     Dates: start: 20140402, end: 20140428
  9. CLONIDINE. [Concomitant]
     Active Substance: CLONIDINE
     Dosage: UNK
     Dates: start: 20140626
  10. LIDOCAINE. [Concomitant]
     Active Substance: LIDOCAINE
     Dosage: UNK
     Dates: start: 20140129
  11. HYDROXYZINE [Concomitant]
     Active Substance: HYDROXYZINE\HYDROXYZINE HYDROCHLORIDE
     Dosage: UNK
     Dates: start: 20140626
  12. BETADINE [Concomitant]
     Active Substance: POVIDONE-IODINE
     Dosage: UNK
     Dates: start: 20131223
  13. ZOFRAN [Concomitant]
     Active Substance: ONDANSETRON HYDROCHLORIDE
     Dosage: UNK
     Dates: start: 201312
  14. FLUOXETINE [Concomitant]
     Active Substance: FLUOXETINE\FLUOXETINE HYDROCHLORIDE
     Dosage: 20 MG, QD
     Route: 048
     Dates: start: 20140402

REACTIONS (20)
  - Upper extremity mass [None]
  - Muscle twitching [None]
  - Affect lability [None]
  - Upper extremity mass [Recovered/Resolved]
  - Headache [None]
  - Dyspnoea [Recovered/Resolved]
  - Thrombosis [Recovered/Resolved]
  - Pain in extremity [Recovered/Resolved]
  - Tenderness [Recovered/Resolved]
  - Thrombophlebitis superficial [None]
  - Limb discomfort [Recovered/Resolved]
  - Dizziness [None]
  - Anhedonia [None]
  - Depressed mood [None]
  - Pain in extremity [None]
  - Weight loss poor [None]
  - Peripheral swelling [Recovered/Resolved]
  - Procedural pain [None]
  - Disturbance in attention [None]
  - Splenomegaly [Recovered/Resolved]

NARRATIVE: CASE EVENT DATE: 201312
